FAERS Safety Report 25847445 (Version 1)
Quarter: 2025Q3

REPORT INFORMATION
  Report Type: Report from Study
  Country: US (occurrence: US)
  Receive Date: 20250925
  Receipt Date: 20250925
  Transmission Date: 20251021
  Serious: No
  Sender: SUNOVION
  Company Number: US-SUMITOMO PHARMA SWITZERLAND GMBH-2025SPA012069

PATIENT
  Age: 67 Year
  Sex: Male

DRUGS (2)
  1. ORGOVYX [Suspect]
     Active Substance: RELUGOLIX
     Indication: Prostate cancer
     Route: 048
     Dates: start: 20250710, end: 20250710
  2. ORGOVYX [Suspect]
     Active Substance: RELUGOLIX
     Route: 048

REACTIONS (6)
  - Urinary tract disorder [Unknown]
  - Nocturia [Unknown]
  - Dysuria [Unknown]
  - Malaise [Unknown]
  - Nausea [Unknown]
  - Therapy interrupted [Recovered/Resolved]
